FAERS Safety Report 7550606-6 (Version None)
Quarter: 2011Q2

REPORT INFORMATION
  Report Type: 
  Country: None (occurrence: None)
  Receive Date: 20110616
  Receipt Date: 20110607
  Transmission Date: 20111010
  Serious: Yes (Hospitalization, Other)
  Sender: FDA-Public Use
  Company Number: US-BIOGENIDEC-2011BI016545

PATIENT
  Age: 58 Year
  Sex: Female

DRUGS (4)
  1. AVONEX [Suspect]
     Indication: MULTIPLE SCLEROSIS
     Route: 030
     Dates: start: 20090116
  2. AVONEX [Suspect]
     Route: 030
     Dates: start: 19980601, end: 20020116
  3. AVONEX [Suspect]
     Route: 030
     Dates: start: 20031013, end: 20040101
  4. AVONEX [Suspect]
     Route: 030
     Dates: start: 20080305, end: 20080915

REACTIONS (7)
  - MEMORY IMPAIRMENT [None]
  - VITREOUS FLOATERS [None]
  - RETINAL SCAR [None]
  - RETINITIS [None]
  - FATIGUE [None]
  - COLITIS ISCHAEMIC [None]
  - CATARACT [None]
